FAERS Safety Report 13570040 (Version 1)
Quarter: 2017Q2

REPORT INFORMATION
  Report Type: Spontaneous
  Country: FR (occurrence: FR)
  Receive Date: 20170522
  Receipt Date: 20170522
  Transmission Date: 20170830
  Serious: Yes (Other)
  Sender: FDA-Public Use
  Company Number: FR-PRINSTON PHARMACEUTICAL INC.-2017PRN00214

PATIENT
  Sex: Male

DRUGS (1)
  1. ESCITALOPRAM [Suspect]
     Active Substance: ESCITALOPRAM OXALATE
     Dosage: 10 MG, 1X/DAY
     Route: 064

REACTIONS (4)
  - Respiratory distress [Recovered/Resolved]
  - Electrocardiogram QT prolonged [Unknown]
  - Hypotonia [Recovered/Resolved]
  - Supraventricular tachycardia [Recovered/Resolved]
